FAERS Safety Report 9982075 (Version 2)
Quarter: 2014Q1

REPORT INFORMATION
  Report Type: Report from Study
  Country: US (occurrence: US)
  Receive Date: 20140307
  Receipt Date: 20140307
  Transmission Date: 20141002
  Serious: No
  Sender: FDA-Public Use
  Company Number: US-ABBVIE-13P-163-1159146-00

PATIENT
  Age: 55 Year
  Sex: Female

DRUGS (5)
  1. HUMIRA [Suspect]
     Indication: PSORIASIS
     Dosage: TWO PENS
     Dates: start: 20131011, end: 20131011
  2. HUMIRA [Suspect]
     Dates: start: 20131018
  3. METOPROLOL [Concomitant]
     Indication: PALPITATIONS
  4. HYDROXYZINE [Concomitant]
     Indication: PRURITUS
  5. CLOBETASOL [Concomitant]
     Indication: ECZEMA

REACTIONS (3)
  - Injection site pain [Not Recovered/Not Resolved]
  - Injection site erythema [Not Recovered/Not Resolved]
  - Rash generalised [Not Recovered/Not Resolved]
